FAERS Safety Report 23107346 (Version 7)
Quarter: 2024Q2

REPORT INFORMATION
  Report Type: Spontaneous
  Country: JP (occurrence: JP)
  Receive Date: 20231026
  Receipt Date: 20240401
  Transmission Date: 20240716
  Serious: Yes (Other)
  Sender: FDA-Public Use
  Company Number: JP-NBI-BJ202316115

PATIENT
  Age: 80 Year
  Sex: Male

DRUGS (7)
  1. OFEV [Suspect]
     Active Substance: NINTEDANIB
     Indication: Idiopathic pulmonary fibrosis
     Route: 048
     Dates: start: 20230914
  2. CARBOCYSTEINE [Concomitant]
     Active Substance: CARBOCYSTEINE
     Indication: Product used for unknown indication
     Route: 065
  3. CARBOCYSTEINE [Concomitant]
     Active Substance: CARBOCYSTEINE
     Route: 065
  4. ELOBIXIBAT [Concomitant]
     Active Substance: ELOBIXIBAT
     Indication: Product used for unknown indication
     Route: 065
  5. ELOBIXIBAT [Concomitant]
     Active Substance: ELOBIXIBAT
     Route: 065
  6. SENNOSIDES [Concomitant]
     Active Substance: SENNOSIDES
     Indication: Faecal management
     Route: 048
  7. AMBROXOL HYDROCHLORIDE [Concomitant]
     Active Substance: AMBROXOL HYDROCHLORIDE
     Indication: Product used for unknown indication
     Route: 065

REACTIONS (30)
  - Bedridden [Recovered/Resolved]
  - Decreased appetite [Recovering/Resolving]
  - Physical deconditioning [Recovered/Resolved]
  - White blood cell count increased [Recovering/Resolving]
  - Sputum retention [Not Recovered/Not Resolved]
  - Constipation [Recovering/Resolving]
  - Diarrhoea [Recovering/Resolving]
  - Thirst [Not Recovered/Not Resolved]
  - Abdominal distension [Recovered/Resolved]
  - Chest discomfort [Recovered/Resolved]
  - Nausea [Recovered/Resolved]
  - Vomiting [Recovered/Resolved]
  - Weight decreased [Recovered/Resolved]
  - Hypophagia [Recovering/Resolving]
  - Weight decreased [Not Recovered/Not Resolved]
  - Nausea [Not Recovered/Not Resolved]
  - Diarrhoea [Not Recovered/Not Resolved]
  - Hypopnoea [Not Recovered/Not Resolved]
  - Breath odour [Not Recovered/Not Resolved]
  - Vomiting [Not Recovered/Not Resolved]
  - Sensation of foreign body [Not Recovered/Not Resolved]
  - Gait disturbance [Not Recovered/Not Resolved]
  - Dyspnoea [Not Recovered/Not Resolved]
  - Faeces hard [Not Recovered/Not Resolved]
  - Muscular weakness [Not Recovered/Not Resolved]
  - Muscular weakness [Not Recovered/Not Resolved]
  - Oxygen saturation decreased [Not Recovered/Not Resolved]
  - Skin discolouration [Unknown]
  - Oedema peripheral [Unknown]
  - Insomnia [Unknown]

NARRATIVE: CASE EVENT DATE: 20231009
